FAERS Safety Report 12083905 (Version 1)
Quarter: 2016Q1

REPORT INFORMATION
  Report Type: Spontaneous
  Country: US (occurrence: None)
  Receive Date: 20160216
  Receipt Date: 20160216
  Transmission Date: 20160526
  Serious: Yes (Disabling, Other)
  Sender: FDA-Public Use
  Company Number: None

PATIENT
  Age: 43 Year
  Sex: Female
  Weight: 121.56 kg

DRUGS (2)
  1. HYDROCHLOROTHIAZIDE (HYDROCHLOROTHIAZIDE) [Concomitant]
     Active Substance: HYDROCHLOROTHIAZIDE
  2. OLD SPICE WILD COLLECTION WOLFTHORN INVISIBLE [Suspect]
     Active Substance: ALUMINUM ZIRCONIUM TRICHLOROHYDREX GLY
     Dosage: 1 APPLICATION  1 ONLY TOPICAL
     Route: 061
     Dates: start: 20151009, end: 20151009

REACTIONS (26)
  - Chemical burn of skin [None]
  - Scar [None]
  - Axillary pain [None]
  - Pain of skin [None]
  - Skin tightness [None]
  - Furuncle [None]
  - Skin exfoliation [None]
  - Subcutaneous abscess [None]
  - Tenderness [None]
  - Skin disorder [None]
  - Skin irritation [None]
  - Dry skin [None]
  - Bacterial infection [None]
  - Application site pain [None]
  - Skin discolouration [None]
  - Cellulitis [None]
  - Skin lesion [None]
  - Application site infection [None]
  - Application site haemorrhage [None]
  - Application site rash [None]
  - Hidradenitis [None]
  - Application site erythema [None]
  - Application site paraesthesia [None]
  - Skin injury [None]
  - Application site discomfort [None]
  - Skin fissures [None]

NARRATIVE: CASE EVENT DATE: 20151010
